FAERS Safety Report 17152126 (Version 1)
Quarter: 2019Q4

REPORT INFORMATION
  Report Type: Spontaneous
  Country: CA (occurrence: CA)
  Receive Date: 20191213
  Receipt Date: 20191213
  Transmission Date: 20200122
  Serious: Yes (Other)
  Sender: FDA-Public Use
  Company Number: CA-COVIS PHARMA B.V.-2019COV00320

PATIENT
  Age: 73 Year
  Sex: Female

DRUGS (9)
  1. TELMISARTAN. [Suspect]
     Active Substance: TELMISARTAN
  2. GABAPENTIN. [Suspect]
     Active Substance: GABAPENTIN
  3. PREDNISONE. [Suspect]
     Active Substance: PREDNISONE
  4. GLYCOPYRRONIUM BROMIDE [Suspect]
     Active Substance: GLYCOPYRRONIUM
  5. SALBUTAMOL SULFATE [Suspect]
     Active Substance: ALBUTEROL SULFATE
  6. OMNARIS [Suspect]
     Active Substance: CICLESONIDE
     Route: 045
  7. CYANOCOBALAMIN. [Concomitant]
     Active Substance: CYANOCOBALAMIN
  8. AMLODIPINE [Suspect]
     Active Substance: AMLODIPINE BESYLATE
  9. LOPERAMIDE [Suspect]
     Active Substance: LOPERAMIDE

REACTIONS (6)
  - Glaucoma [Unknown]
  - Dyspnoea [Unknown]
  - Sleep apnoea syndrome [Unknown]
  - Depression [Unknown]
  - Arthritis [Unknown]
  - Asthma [Unknown]
